FAERS Safety Report 17587360 (Version 2)
Quarter: 2024Q2

REPORT INFORMATION
  Report Type: Report from Study
  Country: DE (occurrence: DE)
  Receive Date: 20200326
  Receipt Date: 20240506
  Transmission Date: 20240716
  Serious: Yes (Death)
  Sender: FDA-Public Use
  Company Number: DE-ABBVIE-20K-062-3293283-00

PATIENT
  Age: 26 Year
  Sex: Male
  Weight: 85 kg

DRUGS (9)
  1. QUETIAPINE [Suspect]
     Active Substance: QUETIAPINE
     Indication: Schizoaffective disorder
     Dosage: 1 DOSAGE FORM, QD
     Route: 048
     Dates: start: 20180824
  2. QUETIAPINE [Suspect]
     Active Substance: QUETIAPINE
     Dosage: 50 MILLIGRAM
     Route: 048
     Dates: start: 20180824
  3. MORPHINE SULFATE [Suspect]
     Active Substance: MORPHINE SULFATE
     Indication: Schizoaffective disorder
     Dosage: 50 MILLIGRAM
     Route: 048
     Dates: start: 20180824
  4. MORPHINE SULFATE [Suspect]
     Active Substance: MORPHINE SULFATE
     Indication: Drug dependence
     Dosage: 1 DOSAGE FORM, QD
     Route: 048
     Dates: start: 20180831
  5. GLECAPREVIR\PIBRENTASVIR [Suspect]
     Active Substance: GLECAPREVIR\PIBRENTASVIR
     Indication: Chronic hepatitis C
     Dosage: 420 MILLIGRAM, QD
     Route: 048
     Dates: start: 20190725
  6. IVY EXTRACT [Concomitant]
     Active Substance: IVY EXTRACT
     Indication: Product used for unknown indication
     Dosage: COUGH LIQUID
     Route: 065
     Dates: start: 20190919, end: 20190924
  7. CLINDAMYCIN [Concomitant]
     Active Substance: CLINDAMYCIN
     Indication: Abscess limb
     Dosage: UNK
     Route: 065
     Dates: start: 20190918, end: 20190920
  8. PANTOPRAZOLE [Concomitant]
     Active Substance: PANTOPRAZOLE
     Indication: Prophylaxis
     Dosage: UNK
     Route: 065
     Dates: start: 20190917, end: 20190920
  9. CLARITHROMYCIN [Concomitant]
     Active Substance: CLARITHROMYCIN
     Indication: Abscess limb
     Dosage: UNK
     Route: 065
     Dates: start: 20190917, end: 20190917

REACTIONS (4)
  - Fall [Fatal]
  - Poisoning [Fatal]
  - Urine alcohol test positive [Fatal]
  - Drug screen positive [Fatal]

NARRATIVE: CASE EVENT DATE: 20200221
